FAERS Safety Report 16715374 (Version 2)
Quarter: 2019Q4

REPORT INFORMATION
  Report Type: Spontaneous
  Country: US (occurrence: US)
  Receive Date: 20190819
  Receipt Date: 20191025
  Transmission Date: 20200122
  Serious: No
  Sender: FDA-Public Use
  Company Number: US-PFIZER INC-2019350495

PATIENT
  Age: 71 Year
  Sex: Female

DRUGS (2)
  1. PROPOFOL. [Suspect]
     Active Substance: PROPOFOL
     Indication: MAGNETIC RESONANCE IMAGING
  2. PROPOFOL. [Suspect]
     Active Substance: PROPOFOL
     Indication: SURGERY
     Dosage: UNK

REACTIONS (9)
  - Drug hypersensitivity [Recovered/Resolved]
  - Oral pruritus [Unknown]
  - Cold urticaria [Unknown]
  - Urticaria [Recovered/Resolved]
  - Nasal congestion [Recovered/Resolved]
  - Rash macular [Unknown]
  - Rhinorrhoea [Recovered/Resolved]
  - Sneezing [Recovered/Resolved]
  - Rhinitis [Recovered/Resolved]

NARRATIVE: CASE EVENT DATE: 201402
